FAERS Safety Report 8236684-X (Version None)
Quarter: 2012Q1

REPORT INFORMATION
  Report Type: 
  Country: None (occurrence: None)
  Receive Date: 20120326
  Receipt Date: 20120326
  Transmission Date: 20120608
  Serious: Yes (Hospitalization)
  Sender: FDA-Public Use
  Company Number: None

PATIENT
  Sex: Male
  Weight: 73.4 kg

DRUGS (12)
  1. PEPCID [Concomitant]
  2. OXYCODONE HCL [Concomitant]
  3. COLACE [Concomitant]
  4. TAXOTERE [Suspect]
     Indication: SARCOMA
     Dosage: TAXOTERE 73MG IV-D1/D15
     Route: 042
     Dates: start: 20120229
  5. OXYCONTIN [Concomitant]
  6. DEXAMETHASONE [Concomitant]
  7. DILTIAZEM [Concomitant]
  8. LIPITOR [Concomitant]
  9. VITAMIN B-12 [Concomitant]
  10. FOLIC ACID [Concomitant]
  11. ALITMA (PEMOTREXED) [Suspect]
     Indication: SARCOMA
     Dosage: ALIMITA 915MG IV-D1/D15 C2D1
     Route: 042
     Dates: start: 20120229
  12. MICARDIS [Concomitant]

REACTIONS (1)
  - PNEUMONIA [None]
